FAERS Safety Report 7953314-2 (Version None)
Quarter: 2011Q4

REPORT INFORMATION
  Report Type: 
  Country: None (occurrence: None)
  Receive Date: 20111202
  Receipt Date: 20111122
  Transmission Date: 20120403
  Serious: Yes (Other)
  Sender: FDA-Public Use
  Company Number: NL-AMGEN-NLDSP2011060589

PATIENT
  Age: 64 Year
  Sex: Male
  Weight: 76 kg

DRUGS (7)
  1. DICLOFENAC SODIUM [Concomitant]
     Dosage: UNK
     Dates: start: 20090510
  2. SULFASALAZINE [Concomitant]
     Dosage: UNK
     Dates: start: 20110706
  3. PLAQUENIL [Concomitant]
     Dosage: UNK
     Dates: start: 20110706
  4. ENBREL [Suspect]
     Indication: RHEUMATOID ARTHRITIS
     Dosage: 50 MG, WEEKLY
     Dates: start: 20111012
  5. OMEPRAZOLE [Concomitant]
     Dosage: UNK
     Dates: start: 20090510
  6. FOLIC ACID [Concomitant]
     Dosage: UNK
     Dates: start: 20090510
  7. METHOTREXATE SODIUM [Concomitant]
     Dosage: UNK
     Dates: start: 20090510

REACTIONS (3)
  - SYNCOPE [None]
  - NIGHT SWEATS [None]
  - BALANCE DISORDER [None]
